FAERS Safety Report 10314205 (Version 2)
Quarter: 2014Q3

REPORT INFORMATION
  Report Type: Spontaneous
  Country: FR (occurrence: FR)
  Receive Date: 20140718
  Receipt Date: 20140902
  Transmission Date: 20150326
  Serious: Yes (Hospitalization)
  Sender: FDA-Public Use
  Company Number: PHHY2014FR086626

PATIENT
  Sex: Female

DRUGS (1)
  1. VALPROATE SODIUM SANDOZ [Suspect]
     Active Substance: VALPROATE SODIUM
     Dosage: 4 G, ONCE/SINGLE
     Route: 048

REACTIONS (2)
  - Wrong drug administered [Unknown]
  - No adverse event [Unknown]

NARRATIVE: CASE EVENT DATE: 201406
